FAERS Safety Report 9006042 (Version 2)
Quarter: 2013Q1

REPORT INFORMATION
  Report Type: Spontaneous
  Country: US (occurrence: US)
  Receive Date: 20130109
  Receipt Date: 20130129
  Transmission Date: 20140127
  Serious: Yes (Hospitalization, Other)
  Sender: FDA-Public Use
  Company Number: PHEH2013US000818

PATIENT
  Age: 59 Year
  Sex: Male

DRUGS (1)
  1. CLOZARIL [Suspect]
     Indication: PSYCHOTIC DISORDER
     Dosage: 475 MG, UNK
     Route: 048

REACTIONS (3)
  - Fall [Unknown]
  - Neutrophil count increased [Recovered/Resolved]
  - White blood cell count increased [Recovered/Resolved]
